FAERS Safety Report 5301801-8 (Version None)
Quarter: 2007Q2

REPORT INFORMATION
  Report Type: 
  Country: None (occurrence: None)
  Receive Date: 20070419
  Receipt Date: 20070416
  Transmission Date: 20071010
  Serious: Yes (Other)
  Sender: FDA-Public Use
  Company Number: US-NOVOPROD-238341

PATIENT
  Sex: Female

DRUGS (12)
  1. ACTIVELLA [Suspect]
     Indication: HORMONE REPLACEMENT THERAPY
     Dosage: 1.0 MG/0.5 MG
     Route: 048
     Dates: start: 20010827, end: 20020819
  2. ACTIVELLA [Suspect]
     Dosage: 1.0 MG/0.5 MG
     Dates: start: 20040805
  3. VAGIFEM [Suspect]
     Indication: HORMONE REPLACEMENT THERAPY
     Dosage: 25 UG, UNK
     Route: 067
     Dates: start: 20020819, end: 20060801
  4. FEMHRT [Suspect]
     Indication: HORMONE REPLACEMENT THERAPY
     Dosage: UNKNOWN
     Dates: start: 20000829, end: 20010301
  5. PREMPRO [Suspect]
     Indication: HORMONE REPLACEMENT THERAPY
     Dates: start: 20000125, end: 20000801
  6. CENESTIN [Suspect]
     Indication: HORMONE REPLACEMENT THERAPY
     Dosage: 1.25 MG, UNK
     Dates: start: 20010503
  7. PROMETRIUM [Suspect]
     Indication: HORMONE REPLACEMENT THERAPY
     Dosage: 100 MG, UNK
     Dates: start: 20010503
  8. SYNTHROID [Concomitant]
     Indication: ILL-DEFINED DISORDER
     Dosage: .05 MG, UNK
     Dates: start: 19900101
  9. ACYCLOVIR                          /00587301/ [Concomitant]
     Indication: ILL-DEFINED DISORDER
     Dosage: 400 MG, UNK
     Dates: start: 19990101
  10. EFFEXOR XR [Concomitant]
     Indication: ILL-DEFINED DISORDER
     Dosage: 75 MG, UNK
     Dates: start: 20020801
  11. CHROMAGEN                          /00555001/ [Concomitant]
     Indication: ILL-DEFINED DISORDER
     Dates: start: 20040701, end: 20041001
  12. PAMINE [Concomitant]
     Indication: ILL-DEFINED DISORDER
     Dates: start: 20030101

REACTIONS (1)
  - VENOUS THROMBOSIS [None]
